FAERS Safety Report 4604074-4 (Version None)
Quarter: 2005Q1

REPORT INFORMATION
  Report Type: 
  Country: None (occurrence: None)
  Receive Date: 20050309
  Receipt Date: 20050309
  Transmission Date: 20050727
  Serious: Yes (Other)
  Sender: FDA-Public Use
  Company Number: None

PATIENT
  Sex: Female
  Weight: 62.5964 kg

DRUGS (3)
  1. GABAPENTIN [Suspect]
     Indication: BIPOLAR DISORDER
     Dosage: 600 MG BID
     Dates: start: 20041001
  2. GABAPENTIN [Suspect]
     Indication: BIPOLAR DISORDER
     Dosage: 600 MG BID
     Dates: start: 20041001
  3. ZIPRASIDONE [Concomitant]

REACTIONS (5)
  - ALOPECIA [None]
  - BLOOD URINE PRESENT [None]
  - CONSTIPATION [None]
  - VISION BLURRED [None]
  - VOMITING PROJECTILE [None]
